FAERS Safety Report 6360955-5 (Version None)
Quarter: 2009Q3

REPORT INFORMATION
  Report Type: 
  Country: None (occurrence: None)
  Receive Date: 20090918
  Receipt Date: 20090911
  Transmission Date: 20100115
  Serious: Yes (Hospitalization)
  Sender: FDA-Public Use
  Company Number: US-BRISTOL-MYERS SQUIBB COMPANY-14510150

PATIENT
  Age: 42 Year
  Sex: Male
  Weight: 113 kg

DRUGS (6)
  1. ERBITUX [Suspect]
     Indication: HEAD AND NECK CANCER
     Route: 042
     Dates: start: 20090212
  2. BENADRYL [Concomitant]
  3. VICODIN [Concomitant]
  4. ROXICODONE [Concomitant]
  5. VALIUM [Concomitant]
  6. DILAUDID [Concomitant]

REACTIONS (1)
  - MENINGITIS ASEPTIC [None]
